FAERS Safety Report 14164464 (Version 1)
Quarter: 2017Q4

REPORT INFORMATION
  Report Type: Report from Study
  Country: KR (occurrence: KR)
  Receive Date: 20171107
  Receipt Date: 20171107
  Transmission Date: 20180321
  Serious: Yes (Hospitalization)
  Sender: FDA-Public Use
  Company Number: KR-ROCHE-2019051

PATIENT
  Age: 51 Year
  Sex: Male

DRUGS (15)
  1. DICAMAX D [Concomitant]
     Dosage: 1TAB
     Route: 048
     Dates: start: 20160311, end: 20170601
  2. SPATAM [Concomitant]
     Route: 048
     Dates: start: 20170421, end: 20170428
  3. EFFIENT [Concomitant]
     Active Substance: PRASUGREL HYDROCHLORIDE
     Indication: ANGINA UNSTABLE
     Dosage: UNCERTAINTY
     Route: 065
     Dates: start: 20170811
  4. METOJECT [Concomitant]
     Active Substance: METHOTREXATE SODIUM
     Indication: RHEUMATOID ARTHRITIS
     Route: 058
     Dates: start: 20160212
  5. MUCOSTA [Concomitant]
     Active Substance: REBAMIPIDE
     Route: 048
     Dates: start: 20160212
  6. ASPIRIN PROTECT [Concomitant]
     Active Substance: ASPIRIN
     Indication: ANGINA UNSTABLE
     Dosage: UNCERTAINTY
     Route: 065
     Dates: start: 20170320
  7. VASTINAN SR [Concomitant]
     Indication: ANGINA UNSTABLE
     Dosage: UNCERTAINTY
     Route: 065
     Dates: start: 20170320
  8. CELEBREX [Concomitant]
     Active Substance: CELECOXIB
     Route: 048
     Dates: start: 20160212
  9. TOCILIZUMAB. [Suspect]
     Active Substance: TOCILIZUMAB
     Indication: RHEUMATOID ARTHRITIS
     Route: 058
     Dates: start: 20170303
  10. ROSUZET [Concomitant]
     Indication: HYPERLIPIDAEMIA
     Dosage: UNCERTAINTY
     Route: 065
     Dates: start: 20170801
  11. LASIX [Concomitant]
     Active Substance: FUROSEMIDE
     Route: 042
     Dates: start: 20170320, end: 20170320
  12. SOLONDO [Concomitant]
     Active Substance: PREDNISOLONE
     Route: 048
     Dates: start: 20160212
  13. CO-DIOVAN [Concomitant]
     Active Substance: HYDROCHLOROTHIAZIDE\VALSARTAN
     Indication: HYPERTENSION
     Dosage: UNCERTAINTY?REPORTED AS CO-DIOVAN 80/12
     Route: 065
     Dates: start: 20170908
  14. FOLIC ACID. [Concomitant]
     Active Substance: FOLIC ACID
     Route: 048
     Dates: start: 20160212
  15. MOLSITON [Concomitant]
     Indication: ANGINA UNSTABLE
     Dosage: UNCERTAINTY
     Route: 065
     Dates: start: 20170811

REACTIONS (1)
  - Myositis [Recovering/Resolving]

NARRATIVE: CASE EVENT DATE: 20170926
